FAERS Safety Report 9894254 (Version 4)
Quarter: 2014Q2

REPORT INFORMATION
  Report Type: Report from Study
  Country: CA (occurrence: CA)
  Receive Date: 20140213
  Receipt Date: 20140605
  Transmission Date: 20141212
  Serious: Yes (Death, Life-Threatening, Hospitalization, Disabling, Other)
  Sender: FDA-Public Use
  Company Number: PHHY2010CA57045

PATIENT
  Age: 58 Year
  Sex: Female
  Weight: 46 kg

DRUGS (35)
  1. ACLASTA/ZOLEDRONATE [Suspect]
     Indication: OSTEOPOROSIS
     Dosage: 5 MG
     Route: 042
     Dates: start: 20090818
  2. ACLASTA/ZOLEDRONATE [Suspect]
     Dosage: 5 MG
     Route: 042
     Dates: start: 20130524, end: 20130524
  3. TOPIRAMATE [Concomitant]
     Dosage: 75 MG, BID
  4. SUMATRIPTAN [Concomitant]
     Dosage: 100 MG PM
  5. AVALIDE [Concomitant]
     Dosage: 1 DF, QD
  6. TYLENOL [Concomitant]
     Dosage: UNK UKN, UNK
  7. COVERSYL PLUS [Concomitant]
     Dosage: UNK UKN, UNK
  8. DILTIAZEM [Concomitant]
     Dosage: UNK UKN, UNK
  9. ZOPICLONE [Concomitant]
     Dosage: UNK UKN, UNK
  10. CLONAZEPAM [Concomitant]
     Dosage: UNK UKN, UNK
  11. CAFERGOT [Concomitant]
     Dosage: UNK UKN, UNK
  12. COVERSYL [Concomitant]
     Dosage: UNK UKN, UNK
  13. TECNAL [Concomitant]
     Dosage: UNK UKN, UNK
  14. FOSAMAX [Concomitant]
     Dosage: 70 MG, UNK
     Dates: start: 20050331
  15. ACTONEL [Concomitant]
     Dosage: UNK UKN, UNK
  16. DIDROCAL [Concomitant]
     Dosage: 400 MG, UNK
  17. EVISTA [Concomitant]
     Dosage: 670 MG, UNK
  18. FORTEO [Concomitant]
     Dosage: 20 MG, UNK
  19. MIACALCIN [Concomitant]
     Dosage: 200 IU, UNK
  20. VITAMIN D [Concomitant]
     Dosage: 1000 U, DAILY
     Dates: start: 20050331
  21. CALCIUM [Concomitant]
     Dosage: 1000 MG, UNK
     Dates: start: 20050331
  22. RAMIPRIL [Concomitant]
  23. B12-VITAMIIN [Concomitant]
  24. FOLIC ACID [Concomitant]
     Dosage: 1 MG, PER DAY
  25. GABAPENTIN [Concomitant]
     Dosage: 600 MG, TID
  26. CIPROLEX [Concomitant]
     Dosage: 10 MG, PER DAY
  27. NASILEX [Concomitant]
  28. SALBUTAMOL [Concomitant]
  29. NEXIUM 1-2-3 [Concomitant]
  30. KEPPRA [Concomitant]
     Dosage: 1500 MG, BID
  31. NORTRIPTYLINE [Concomitant]
     Dosage: 10 MG, QHS
  32. ATROVENT [Concomitant]
  33. ATIVAN [Concomitant]
  34. VALPROIC ACID [Concomitant]
     Dosage: 250 MG, TID
  35. PANTOLOC CONTROL [Concomitant]
     Dosage: 40 MG, DAILY

REACTIONS (13)
  - Status epilepticus [Fatal]
  - Convulsion [Recovering/Resolving]
  - Haemorrhagic cerebral infarction [Recovering/Resolving]
  - Hemiparesis [Recovering/Resolving]
  - Cerebral infarction [Recovering/Resolving]
  - Hip fracture [Unknown]
  - Pelvic fracture [Recovering/Resolving]
  - Fall [Unknown]
  - Hepatic enzyme increased [Recovered/Resolved]
  - Metabolic acidosis [Recovered/Resolved]
  - Respiratory failure [Recovered/Resolved]
  - Shock [Recovered/Resolved]
  - Hypokalaemia [Recovered/Resolved]
